FAERS Safety Report 9942280 (Version 1)
Quarter: 2014Q1

REPORT INFORMATION
  Report Type: Spontaneous
  Country: US (occurrence: US)
  Receive Date: 20140303
  Receipt Date: 20140303
  Transmission Date: 20141002
  Serious: Yes (Death)
  Sender: FDA-Public Use
  Company Number: US-SA-2014SA025320

PATIENT
  Sex: Male

DRUGS (1)
  1. LANTUS [Suspect]
     Route: 051

REACTIONS (1)
  - Lung neoplasm malignant [Fatal]
